FAERS Safety Report 5450233-0 (Version None)
Quarter: 2007Q3

REPORT INFORMATION
  Report Type: 
  Country: None (occurrence: None)
  Receive Date: 20070912
  Receipt Date: 20070906
  Transmission Date: 20080115
  Serious: Yes (Disabling)
  Sender: FDA-Public Use
  Company Number: US-GILEAD-2007-0012695

PATIENT
  Sex: Female
  Weight: 74 kg

DRUGS (6)
  1. LETAIRIS [Suspect]
     Indication: PULMONARY HYPERTENSION
     Route: 048
     Dates: start: 20070629
  2. FLOLAN [Concomitant]
     Route: 042
     Dates: start: 20001101
  3. COUMADIN [Concomitant]
     Indication: PULMONARY HYPERTENSION
     Route: 048
     Dates: start: 20020101
  4. ATENOLOL [Concomitant]
     Route: 048
     Dates: start: 20070622
  5. K-DUR 10 [Concomitant]
     Route: 048
     Dates: start: 20070131
  6. MAGNESIUM OXIDE [Concomitant]
     Route: 048
     Dates: start: 20040801

REACTIONS (7)
  - ABDOMINAL DISTENSION [None]
  - BURNING SENSATION [None]
  - DYSPNOEA [None]
  - FLUSHING [None]
  - HEADACHE [None]
  - OEDEMA PERIPHERAL [None]
  - PRURITUS [None]
